FAERS Safety Report 16639951 (Version 1)
Quarter: 2019Q3

REPORT INFORMATION
  Report Type: Spontaneous
  Country: GB (occurrence: GB)
  Receive Date: 20190727
  Receipt Date: 20190727
  Transmission Date: 20191004
  Serious: Yes (Disabling, Other)
  Sender: FDA-Public Use
  Company Number: GB-ACCORD-149097

PATIENT
  Age: 38 Year
  Sex: Female
  Weight: 60 kg

DRUGS (4)
  1. FEXOFENADINE [Concomitant]
     Active Substance: FEXOFENADINE HYDROCHLORIDE
  2. AMITRIPTYLINE [Suspect]
     Active Substance: AMITRIPTYLINE
     Indication: PRODUCT USED FOR UNKNOWN INDICATION
     Dosage: 10 - 50MG
     Dates: end: 20190621
  3. DIANETTE [Concomitant]
     Active Substance: CYPROTERONE ACETATE\ETHINYL ESTRADIOL
  4. PHENERGAN [Concomitant]
     Active Substance: PROMETHAZINE HYDROCHLORIDE

REACTIONS (13)
  - Multiple allergies [Recovering/Resolving]
  - Tendonitis [Not Recovered/Not Resolved]
  - Muscular weakness [Recovering/Resolving]
  - Confusional state [Not Recovered/Not Resolved]
  - Rash generalised [Recovered/Resolved with Sequelae]
  - Abnormal weight gain [Recovering/Resolving]
  - Arthralgia [Not Recovered/Not Resolved]
  - Swelling face [Recovered/Resolved with Sequelae]
  - Hot flush [Not Recovered/Not Resolved]
  - Tremor [Recovered/Resolved]
  - Arthritis [Not Recovered/Not Resolved]
  - Heart rate increased [Not Recovered/Not Resolved]
  - Night sweats [Recovering/Resolving]

NARRATIVE: CASE EVENT DATE: 20180404
